FAERS Safety Report 4736935-X (Version None)
Quarter: 2005Q3

REPORT INFORMATION
  Report Type: 
  Country: None (occurrence: None)
  Receive Date: 20050808
  Receipt Date: 20050615
  Transmission Date: 20060218
  Serious: Yes (Hospitalization)
  Sender: FDA-Public Use
  Company Number: US-ROCHE-407882

PATIENT
  Age: 57 Year
  Sex: Female
  Weight: 83 kg

DRUGS (6)
  1. IBANDRONIC ACID [Suspect]
     Indication: OSTEOPOROSIS POSTMENOPAUSAL
     Route: 048
     Dates: start: 20040919
  2. CELEBREX [Concomitant]
     Dates: start: 19990615
  3. MULTIVITAMIN NOS [Concomitant]
     Dates: start: 19980615
  4. CALCIUM/VITAMIN D [Concomitant]
     Dosage: DOSE REPORTED AS 500/200.
     Dates: start: 20021115
  5. ALPHAGAN [Concomitant]
     Dates: start: 19980515
  6. ASPIRIN [Concomitant]
     Dates: start: 20041228

REACTIONS (1)
  - DYSPNOEA [None]
